FAERS Safety Report 4665417-9 (Version None)
Quarter: 2005Q2

REPORT INFORMATION
  Report Type: 
  Country: None (occurrence: None)
  Receive Date: 20050517
  Receipt Date: 20050503
  Transmission Date: 20051028
  Serious: Yes (Hospitalization, Other)
  Sender: FDA-Public Use
  Company Number: USA050597124

PATIENT
  Age: 61 Year
  Sex: Male
  Weight: 58 kg

DRUGS (1)
  1. HUMULIN N [Suspect]
     Dosage: 50 U DAY

REACTIONS (9)
  - CONDITION AGGRAVATED [None]
  - DEEP VEIN THROMBOSIS [None]
  - DIABETES MELLITUS NON-INSULIN-DEPENDENT [None]
  - DYSSTASIA [None]
  - LOCALISED INFECTION [None]
  - OSTEOMYELITIS [None]
  - RENAL TRANSPLANT [None]
  - TOE AMPUTATION [None]
  - VISUAL ACUITY REDUCED [None]
